FAERS Safety Report 19197355 (Version 2)
Quarter: 2021Q2

REPORT INFORMATION
  Report Type: Spontaneous
  Country: US (occurrence: US)
  Receive Date: 20210430
  Receipt Date: 20210512
  Transmission Date: 20210717
  Serious: Yes (Death)
  Sender: FDA-Public Use
  Company Number: US-ROCHE-2821128

PATIENT
  Age: 77 Year
  Sex: Female

DRUGS (5)
  1. ESBRIET [Suspect]
     Active Substance: PIRFENIDONE
     Indication: INTERSTITIAL LUNG DISEASE
     Dosage: 2 TABLETS BY MOUTH 3 TIMES A DAY
     Route: 048
  2. METOPROLOL. [Concomitant]
     Active Substance: METOPROLOL
  3. LOPERAMIDE [Concomitant]
     Active Substance: LOPERAMIDE
  4. VALSARTAN. [Concomitant]
     Active Substance: VALSARTAN
  5. OFEV [Concomitant]
     Active Substance: NINTEDANIB

REACTIONS (1)
  - Respiratory failure [Fatal]

NARRATIVE: CASE EVENT DATE: 20210426
